FAERS Safety Report 4481157-3 (Version None)
Quarter: 2004Q4

REPORT INFORMATION
  Report Type: 
  Country: None (occurrence: None)
  Receive Date: 20041021
  Receipt Date: 20041004
  Transmission Date: 20050328
  Serious: Yes (Hospitalization)
  Sender: FDA-Public Use
  Company Number: NZ-MERCK-0410NZL00030

PATIENT
  Age: 55 Year
  Sex: Male

DRUGS (2)
  1. VIOXX [Suspect]
     Route: 048
     Dates: start: 20020101, end: 20041001
  2. QUINAPRIL HYDROCHLORIDE [Concomitant]
     Indication: HYPERTENSION
     Route: 065
     Dates: start: 20020920, end: 20040129

REACTIONS (1)
  - MYOCARDIAL INFARCTION [None]
